FAERS Safety Report 21727322 (Version 1)
Quarter: 2022Q4

REPORT INFORMATION
  Report Type: Spontaneous
  Country: US (occurrence: None)
  Receive Date: 20221213
  Receipt Date: 20221213
  Transmission Date: 20230113
  Serious: No
  Sender: FDA-Public Use
  Company Number: None

PATIENT
  Age: 79 Year
  Sex: Female

DRUGS (11)
  1. HUMIRA [Suspect]
     Active Substance: ADALIMUMAB
     Indication: Crohn^s disease
     Dosage: FREQUENCY : EVERY OTHER WEEK;?
     Route: 058
     Dates: start: 20200914
  2. CALCIUM CITRATE + D TABLETS [Concomitant]
  3. AMIODARONE [Concomitant]
     Active Substance: AMIODARONE
  4. B-12 SUBLNG TABS [Concomitant]
  5. CRANBERRY CONCENTRATE CAPS [Concomitant]
  6. IRON TABLETS [Concomitant]
  7. ONE A DAY WOMENS 50+ ADVTAB [Concomitant]
  8. TYLENOL GEL CAPSULE [Concomitant]
  9. AMLODIPINE [Concomitant]
     Active Substance: AMLODIPINE BESYLATE
  10. XARELTO TABLETS [Concomitant]
  11. CALCIUM CITRATE + D TABLETS [Concomitant]

REACTIONS (3)
  - Incorrect dose administered [None]
  - Drug delivery system malfunction [None]
  - Injection site pain [None]

NARRATIVE: CASE EVENT DATE: 20221113
